FAERS Safety Report 9847476 (Version 1)
Quarter: 2014Q1

REPORT INFORMATION
  Report Type: Spontaneous
  Country: DE (occurrence: DE)
  Receive Date: 20140127
  Receipt Date: 20140127
  Transmission Date: 20141002
  Serious: Yes (Hospitalization)
  Sender: FDA-Public Use
  Company Number: DE-009507513-1401DEU010947

PATIENT
  Age: 43 Year
  Sex: Female

DRUGS (2)
  1. NUVARING [Suspect]
     Indication: CONTRACEPTION
     Dosage: UNK
     Route: 067
     Dates: start: 2008
  2. TRACLEER [Interacting]
     Indication: PULMONARY HYPERTENSION

REACTIONS (2)
  - Pulmonary hypertension [Not Recovered/Not Resolved]
  - Drug interaction [Unknown]
